FAERS Safety Report 15623497 (Version 1)
Quarter: 2018Q4

REPORT INFORMATION
  Report Type: Spontaneous
  Country: DK (occurrence: DK)
  Receive Date: 20181115
  Receipt Date: 20181115
  Transmission Date: 20190205
  Serious: Yes (Other)
  Sender: FDA-Public Use
  Company Number: DK-009507513-1811DNK005664

PATIENT
  Age: 50 Year
  Sex: Female

DRUGS (1)
  1. DIPROSPAN [Suspect]
     Active Substance: BETAMETHASONE DIPROPIONATE\BETAMETHASONE SODIUM PHOSPHATE
     Indication: SEASONAL ALLERGY
     Dosage: STRENGTH: 7 MILLIGRAMS/MILLILITERS (MG/ML)
     Dates: start: 20080603, end: 20090616

REACTIONS (2)
  - Cataract operation [Recovered/Resolved]
  - Cataract [Unknown]

NARRATIVE: CASE EVENT DATE: 2017
